FAERS Safety Report 8384874-8 (Version None)
Quarter: 2012Q2

REPORT INFORMATION
  Report Type: 
  Country: None (occurrence: None)
  Receive Date: 20120524
  Receipt Date: 20120511
  Transmission Date: 20120825
  Serious: Yes (Hospitalization, Other)
  Sender: FDA-Public Use
  Company Number: US-ELI_LILLY_AND_COMPANY-US201205004390

PATIENT
  Sex: Male

DRUGS (2)
  1. CYMBALTA [Suspect]
  2. MIRTAZAPINE [Concomitant]

REACTIONS (3)
  - GASTROINTESTINAL TUBE INSERTION [None]
  - HOSPITALISATION [None]
  - INTESTINAL OPERATION [None]
